FAERS Safety Report 8433788-3 (Version None)
Quarter: 2012Q2

REPORT INFORMATION
  Report Type: 
  Country: None (occurrence: None)
  Receive Date: 20120613
  Receipt Date: 20120604
  Transmission Date: 20120825
  Serious: Yes (Other)
  Sender: FDA-Public Use
  Company Number: CA-ASTRAZENECA-2012SE37481

PATIENT

DRUGS (2)
  1. DIPRIVAN [Suspect]
     Route: 050
  2. ANTIBIOTIC [Concomitant]
     Indication: INFECTION

REACTIONS (1)
  - DEPRESSED LEVEL OF CONSCIOUSNESS [None]
